FAERS Safety Report 4355173-6 (Version None)
Quarter: 2004Q2

REPORT INFORMATION
  Report Type: 
  Country: None (occurrence: None)
  Receive Date: 20040510
  Receipt Date: 20040205
  Transmission Date: 20050107
  Serious: Yes (Other)
  Sender: FDA-Public Use
  Company Number: PHBS2004BR01852

PATIENT
  Age: 51 Year
  Sex: Female
  Weight: 76 kg

DRUGS (3)
  1. ZELMAC [Suspect]
     Indication: IRRITABLE BOWEL SYNDROME
     Dosage: 6 MG, BID
     Route: 048
     Dates: start: 20040205
  2. ZELMAC [Suspect]
     Dosage: 6 MG, BID
     Route: 048
     Dates: start: 20040425
  3. OMEPRAZOLE [Concomitant]
     Indication: GASTRITIS
     Route: 065

REACTIONS (6)
  - COLITIS [None]
  - DIVERTICULITIS [None]
  - FLATULENCE [None]
  - GASTRITIS [None]
  - HEADACHE [None]
  - INTESTINAL OBSTRUCTION [None]
